FAERS Safety Report 23827236 (Version 1)
Quarter: 2024Q2

REPORT INFORMATION
  Report Type: Spontaneous
  Country: FR (occurrence: FR)
  Receive Date: 20240507
  Receipt Date: 20240507
  Transmission Date: 20240715
  Serious: Yes (Hospitalization, Other)
  Sender: FDA-Public Use
  Company Number: FR-GSKCCFEMEA-Case-01971471_AE-82994

PATIENT

DRUGS (1)
  1. LAMICTAL [Suspect]
     Active Substance: LAMOTRIGINE
     Indication: Product used for unknown indication
     Dosage: 100 MG
     Dates: start: 2017

REACTIONS (3)
  - Hospitalisation [Unknown]
  - Loss of consciousness [Unknown]
  - Hypoaesthesia [Unknown]
